FAERS Safety Report 12410796 (Version 1)
Quarter: 2016Q2

REPORT INFORMATION
  Report Type: Spontaneous
  Country: US (occurrence: US)
  Receive Date: 20160527
  Receipt Date: 20160527
  Transmission Date: 20160815
  Serious: No
  Sender: FDA-Public Use
  Company Number: US-ASTRAZENECA-2012SE26052

PATIENT
  Age: 47 Year
  Sex: Female

DRUGS (2)
  1. NEXIUM [Suspect]
     Active Substance: ESOMEPRAZOLE MAGNESIUM
     Route: 048
  2. PULMICORT FLEXHALER [Suspect]
     Active Substance: BUDESONIDE
     Route: 055

REACTIONS (10)
  - Back pain [Unknown]
  - Pain [Unknown]
  - Hyperchlorhydria [Unknown]
  - Gastric disorder [Unknown]
  - Mental disorder [Unknown]
  - Intervertebral disc protrusion [Unknown]
  - Headache [Unknown]
  - Bipolar disorder [Unknown]
  - Anxiety [Unknown]
  - Malaise [Unknown]
